FAERS Safety Report 18344707 (Version 1)
Quarter: 2020Q4

REPORT INFORMATION
  Report Type: Spontaneous
  Country: US (occurrence: US)
  Receive Date: 20201005
  Receipt Date: 20201005
  Transmission Date: 20210114
  Serious: Yes (Other)
  Sender: FDA-Public Use
  Company Number: None

PATIENT
  Age: 68 Year
  Sex: Female
  Weight: 63.45 kg

DRUGS (10)
  1. ALBUTEROL INHALER [Concomitant]
     Active Substance: ALBUTEROL
  2. ALBUTEROL INHALATION SOLUTION [Concomitant]
     Active Substance: ALBUTEROL
  3. IPRATROPIUM BROMIDE INHALTION SO;UTION [Concomitant]
  4. ASPRIN [Concomitant]
     Active Substance: ASPIRIN
  5. POLYMYXIN B SULFATE-TRIMETHOPRIM [Suspect]
     Active Substance: POLYMYXIN B SULFATE\TRIMETHOPRIM SULFATE
     Indication: OCULAR HYPERAEMIA
     Route: 047
     Dates: start: 20200928, end: 20201004
  6. ZINC. [Concomitant]
     Active Substance: ZINC
  7. DOXYCYCLINE MONOHYDRATE [Concomitant]
     Active Substance: DOXYCYCLINE
  8. VITAMIN D3 [Concomitant]
     Active Substance: CHOLECALCIFEROL
  9. LOVASTATIN. [Concomitant]
     Active Substance: LOVASTATIN
  10. ALVESCO [Concomitant]
     Active Substance: CICLESONIDE

REACTIONS (3)
  - Ocular hyperaemia [None]
  - Eye irritation [None]
  - Eye discharge [None]

NARRATIVE: CASE EVENT DATE: 20200928
